FAERS Safety Report 22003957 (Version 1)
Quarter: 2023Q1

REPORT INFORMATION
  Report Type: Spontaneous
  Country: US (occurrence: US)
  Receive Date: 20230217
  Receipt Date: 20230217
  Transmission Date: 20230418
  Serious: Yes (Death, Hospitalization, Other)
  Sender: FDA-Public Use
  Company Number: US-ADVANZ PHARMA-202301000938

PATIENT

DRUGS (7)
  1. CLONIDINE [Suspect]
     Active Substance: CLONIDINE
     Dosage: UNK, INGESTION
     Route: 048
  2. DILTIAZEM [Suspect]
     Active Substance: DILTIAZEM
     Dosage: UNK, INGESTION (EXTENDED RELEASE)
     Route: 048
  3. NADOLOL [Suspect]
     Active Substance: NADOLOL
     Dosage: UNK, INGESTION
     Route: 048
  4. CODEINE [Suspect]
     Active Substance: CODEINE
     Dosage: UNK, INGESTION
     Route: 048
  5. ALCOHOL [Suspect]
     Active Substance: ALCOHOL
     Dosage: UNK, INGESTION (BEVERAGE)
     Route: 048
  6. ALPRAZOLAM [Suspect]
     Active Substance: ALPRAZOLAM
     Dosage: UNK, INGESTION
     Route: 048
  7. METRONIDAZOLE [Suspect]
     Active Substance: METRONIDAZOLE
     Dosage: UNK, INGESTION
     Route: 048

REACTIONS (1)
  - Completed suicide [Fatal]
